FAERS Safety Report 10448324 (Version 1)
Quarter: 2014Q3

REPORT INFORMATION
  Report Type: Spontaneous
  Country: US (occurrence: US)
  Receive Date: 20140911
  Receipt Date: 20140911
  Transmission Date: 20150326
  Serious: Yes (Hospitalization)
  Sender: FDA-Public Use
  Company Number: US-UPSHER-SMITH LABORATORIES, INC.-14002395

PATIENT
  Age: 64 Year
  Sex: Male

DRUGS (21)
  1. ATORVASTATIN CALCIUM. [Concomitant]
     Active Substance: ATORVASTATIN CALCIUM
     Indication: CARDIAC DISORDER
     Dosage: UNK
  2. METOPROLOL [Concomitant]
     Active Substance: METOPROLOL
     Indication: CARDIAC DISORDER
     Dosage: UNK
  3. LEVOTHYROXINE SODIUM. [Concomitant]
     Active Substance: LEVOTHYROXINE SODIUM
     Indication: THYROIDECTOMY
     Dosage: UNK
  4. NITROSTAT [Concomitant]
     Active Substance: NITROGLYCERIN
     Indication: CARDIAC DISORDER
     Dosage: UNK, PRN
     Route: 060
  5. PHOSLO [Concomitant]
     Active Substance: CALCIUM ACETATE
     Indication: RENAL FAILURE CHRONIC
     Dosage: UNK
  6. KLOR-CON [Suspect]
     Active Substance: POTASSIUM CHLORIDE
     Dosage: 240 MEQ, QD
     Route: 048
     Dates: start: 201408, end: 201408
  7. TORSEMIDE. [Concomitant]
     Active Substance: TORSEMIDE
     Indication: RENAL FAILURE CHRONIC
     Dosage: UNK
  8. COUMADIN [Concomitant]
     Active Substance: WARFARIN SODIUM
     Indication: AORTIC VALVE REPLACEMENT
     Dosage: UNK
  9. ALLOPURINOL. [Concomitant]
     Active Substance: ALLOPURINOL
     Indication: GOUT
     Dosage: UNK
  10. GUAIFENESIN. [Concomitant]
     Active Substance: GUAIFENESIN
     Dosage: UNK
  11. KLOR-CON [Suspect]
     Active Substance: POTASSIUM CHLORIDE
     Dosage: 60 MEQ, TID
     Route: 048
     Dates: start: 201407, end: 201408
  12. ZAROXOLYN [Concomitant]
     Active Substance: METOLAZONE
     Indication: RENAL FAILURE CHRONIC
     Dosage: UNK, PRN
  13. ALDACTONE [Concomitant]
     Active Substance: SPIRONOLACTONE
     Indication: RENAL FAILURE CHRONIC
     Dosage: UNK
  14. FLUTICASONE [Concomitant]
     Active Substance: FLUTICASONE\FLUTICASONE PROPIONATE
     Indication: UPPER-AIRWAY COUGH SYNDROME
     Dosage: UNK
     Route: 045
  15. OMEPRAZOLE. [Concomitant]
     Active Substance: OMEPRAZOLE
     Indication: REFLUX LARYNGITIS
     Dosage: UNK
  16. ASPIRIN. [Concomitant]
     Active Substance: ASPIRIN
     Dosage: UNK
  17. ATROVENT [Concomitant]
     Active Substance: IPRATROPIUM BROMIDE
     Indication: UPPER-AIRWAY COUGH SYNDROME
     Dosage: UNK
     Route: 045
  18. PLAVIX [Concomitant]
     Active Substance: CLOPIDOGREL BISULFATE
     Dosage: UNK
  19. KLOR-CON [Suspect]
     Active Substance: POTASSIUM CHLORIDE
     Indication: DIURETIC THERAPY
     Dosage: 60 MEQ, TID
     Route: 048
     Dates: start: 201408
  20. ISOSORBIDE MONONITRATE. [Concomitant]
     Active Substance: ISOSORBIDE MONONITRATE
     Indication: CARDIAC DISORDER
     Dosage: UNK
  21. DOCUSATE SODIUM. [Concomitant]
     Active Substance: DOCUSATE SODIUM
     Dosage: UNK

REACTIONS (3)
  - Hyperkalaemia [Recovered/Resolved]
  - Blood potassium decreased [Unknown]
  - Medication residue present [Not Recovered/Not Resolved]

NARRATIVE: CASE EVENT DATE: 201407
